FAERS Safety Report 9073323 (Version 1)
Quarter: 2013Q1

REPORT INFORMATION
  Report Type: Report from Study
  Country: US (occurrence: US)
  Receive Date: 20130129
  Receipt Date: 20130129
  Transmission Date: 20140127
  Serious: No
  Sender: FDA-Public Use
  Company Number: US-ABBOTT-12P-163-0921373-00

PATIENT
  Sex: Female
  Weight: 95.34 kg

DRUGS (25)
  1. HUMIRA 40 MG/ 0.8 ML PRE-FILLED SYRINGE [Suspect]
     Indication: RHEUMATOID ARTHRITIS
     Dates: start: 2007
  2. HUMIRA 40 MG/ 0.8 ML PRE-FILLED SYRINGE [Suspect]
     Dates: start: 2007, end: 2007
  3. VITAMIN B12 [Concomitant]
     Indication: VITAMIN B12 DEFICIENCY
  4. PREDNISONE [Concomitant]
     Indication: RHEUMATOID ARTHRITIS
  5. DETROL LA [Concomitant]
     Indication: POLLAKIURIA
  6. LISINOPRIL [Concomitant]
     Indication: HYPERTENSION
  7. SYNTHROID [Concomitant]
     Indication: HYPOTHYROIDISM
  8. EFFEXOR [Concomitant]
     Indication: DEPRESSION
  9. BUPROPION [Concomitant]
     Indication: DEPRESSION
  10. CALCIUM [Concomitant]
     Indication: MINERAL SUPPLEMENTATION
  11. IRON [Concomitant]
     Indication: MINERAL SUPPLEMENTATION
  12. MULTIVITAMINS [Concomitant]
     Indication: VITAMIN SUPPLEMENTATION
  13. OMEPRAZOLE [Concomitant]
     Indication: GASTROOESOPHAGEAL REFLUX DISEASE
  14. UNKNOWN ALLERGY MEDICATION [Concomitant]
     Indication: HYPERSENSITIVITY
  15. FOLIC ACID [Concomitant]
     Indication: RHEUMATOID ARTHRITIS
  16. ELAVIL [Concomitant]
     Indication: DEPRESSION
  17. CYCLOBENZAPRINE [Concomitant]
     Indication: MUSCLE SPASMS
  18. ADVAIR [Concomitant]
     Indication: ASTHMA
  19. SPIRIVA [Concomitant]
     Indication: ASTHMA
  20. ALBUTEROL [Concomitant]
     Indication: ASTHMA
  21. NASONEX [Concomitant]
     Indication: HYPERSENSITIVITY
  22. FOSAMAX [Concomitant]
     Indication: OSTEOPOROSIS
  23. CLONAZEPAM [Concomitant]
     Indication: MUSCLE SPASMS
  24. HYDROCODONE/ACETAMINOPHEN [Concomitant]
     Indication: PAIN
  25. LIDOCAINE [Concomitant]
     Indication: PAIN
     Dosage: PATCHES, AS NEEDED

REACTIONS (2)
  - Injection site pain [Not Recovered/Not Resolved]
  - Drug ineffective [Recovered/Resolved]
